FAERS Safety Report 7732463-8 (Version None)
Quarter: 2011Q3

REPORT INFORMATION
  Report Type: 
  Country: None (occurrence: None)
  Receive Date: 20110906
  Receipt Date: 20110823
  Transmission Date: 20111222
  Serious: No
  Sender: FDA-Public Use
  Company Number: FR-ELI_LILLY_AND_COMPANY-FR201108007861

PATIENT
  Age: 63 Year
  Sex: Female

DRUGS (3)
  1. ZYPREXA [Suspect]
     Indication: DELIRIUM
     Dosage: 15 MG, UNK
  2. ZYPREXA [Suspect]
     Dosage: 20 MG, UNK
  3. EFFEXOR [Concomitant]
     Dosage: 75 MG, TID

REACTIONS (3)
  - OFF LABEL USE [None]
  - DRUG INTERACTION [None]
  - NEUTROPENIA [None]
